FAERS Safety Report 7062676-2 (Version None)
Quarter: 2010Q4

REPORT INFORMATION
  Report Type: 
  Country: None (occurrence: None)
  Receive Date: 20101026
  Receipt Date: 20091214
  Transmission Date: 20110411
  Serious: No
  Sender: FDA-Public Use
  Company Number: US-PFIZER INC-2009311710

PATIENT
  Sex: Male
  Weight: 83.9 kg

DRUGS (2)
  1. LIPITOR [Suspect]
     Indication: BLOOD CHOLESTEROL INCREASED
     Dosage: 20 MG, 1X/DAY
     Route: 048
     Dates: start: 20091001
  2. ATENOLOL [Concomitant]
     Indication: ARRHYTHMIA
     Dosage: UNK

REACTIONS (1)
  - ALOPECIA [None]
